FAERS Safety Report 23481035 (Version 1)
Quarter: 2024Q1

REPORT INFORMATION
  Report Type: Spontaneous
  Country: US (occurrence: US)
  Receive Date: 20240205
  Receipt Date: 20240205
  Transmission Date: 20240410
  Serious: Yes (Other)
  Sender: FDA-Public Use
  Company Number: US-BRISTOL-MYERS SQUIBB COMPANY-2024-017140

PATIENT
  Age: 76 Year
  Sex: Male

DRUGS (1)
  1. ELIQUIS [Suspect]
     Active Substance: APIXABAN
     Indication: Atrial fibrillation
     Route: 048
     Dates: start: 20230823

REACTIONS (9)
  - Balance disorder [Unknown]
  - Fall [Unknown]
  - Dyspnoea [Unknown]
  - Cardiac flutter [Unknown]
  - Dizziness [Unknown]
  - Wheezing [Unknown]
  - Peripheral swelling [Unknown]
  - Vision blurred [Unknown]
  - Overweight [Unknown]

NARRATIVE: CASE EVENT DATE: 20240108
